FAERS Safety Report 4553299-5 (Version None)
Quarter: 2005Q1

REPORT INFORMATION
  Report Type: 
  Country: None (occurrence: None)
  Receive Date: 20050113
  Receipt Date: 20050110
  Transmission Date: 20050727
  Serious: Yes (Hospitalization, Other)
  Sender: FDA-Public Use
  Company Number: DEWYE326910JAN05

PATIENT
  Age: 79 Year
  Sex: Male

DRUGS (6)
  1. VENLAFAXINE HCL [Suspect]
     Indication: DEPRESSION
     Dosage: SEE IMAGE
     Route: 048
     Dates: start: 20041201, end: 20041201
  2. VENLAFAXINE HCL [Suspect]
     Indication: DEPRESSION
     Dosage: SEE IMAGE
     Route: 048
     Dates: start: 20041206, end: 20041201
  3. VENLAFAXINE HCL [Suspect]
     Indication: DEPRESSION
     Dosage: SEE IMAGE
     Route: 048
     Dates: start: 20041201, end: 20041216
  4. VENLAFAXINE HCL [Suspect]
     Indication: DEPRESSION
     Dosage: SEE IMAGE
     Route: 048
     Dates: start: 20041217, end: 20041220
  5. EUNERPAN (MELPERONE HYDROCHLORIDE) [Concomitant]
  6. LORZAAR PLUS (HYDROCHLORTHIAZIDE/LOSARTAN POTASSIUM) [Concomitant]

REACTIONS (5)
  - BLOOD CHLORIDE DECREASED [None]
  - CARDIAC FAILURE [None]
  - INAPPROPRIATE ANTIDIURETIC HORMONE SECRETION [None]
  - PLEURAL EFFUSION [None]
  - TRANSAMINASES INCREASED [None]
